FAERS Safety Report 4959107-2 (Version None)
Quarter: 2006Q1

REPORT INFORMATION
  Report Type: 
  Country: None (occurrence: None)
  Receive Date: 20060330
  Receipt Date: 20060330
  Transmission Date: 20060701
  Serious: No
  Sender: FDA-Public Use
  Company Number: None

PATIENT
  Sex: Female

DRUGS (1)
  1. INJ IVOMEC [Suspect]
     Indication: DRUG ADMINISTRATION ERROR
     Dosage: INJ
     Dates: start: 20060203, end: 20060203

REACTIONS (4)
  - ACCIDENTAL EXPOSURE [None]
  - DYSGEUSIA [None]
  - PHARYNGEAL HYPOAESTHESIA [None]
  - THROAT IRRITATION [None]
